FAERS Safety Report 17038123 (Version 1)
Quarter: 2019Q4

REPORT INFORMATION
  Report Type: Spontaneous
  Country: IT (occurrence: IT)
  Receive Date: 20191115
  Receipt Date: 20191115
  Transmission Date: 20200122
  Serious: Yes (Other)
  Sender: FDA-Public Use
  Company Number: IT-HIKMA PHARMACEUTICALS USA INC.-IT-H14001-19-49901

PATIENT
  Age: 72 Year
  Sex: Male

DRUGS (4)
  1. IRINOTECAN [Suspect]
     Active Substance: IRINOTECAN
     Indication: METASTASES TO SKIN
     Route: 065
  2. FLUOROURACIL. [Suspect]
     Active Substance: FLUOROURACIL
     Indication: RECTAL CANCER METASTATIC
     Route: 065
  3. OXALIPLATIN. [Suspect]
     Active Substance: OXALIPLATIN
     Indication: RECTAL CANCER METASTATIC
     Route: 065
  4. BEVACIZUMAB. [Suspect]
     Active Substance: BEVACIZUMAB
     Indication: RECTAL CANCER METASTATIC
     Dosage: MEDIAN RECEIVED DOSE-INTENSITY WAS 100% FOR ALL ASSOCIATED DRUGS () ; CYCLICAL
     Route: 065

REACTIONS (8)
  - Nausea [Unknown]
  - Neutropenia [Unknown]
  - Alopecia [Unknown]
  - Rhinitis [Unknown]
  - Toxicity to various agents [Unknown]
  - Epistaxis [Unknown]
  - Neurotoxicity [Unknown]
  - Asthenia [Unknown]
